FAERS Safety Report 6304750-1 (Version None)
Quarter: 2009Q3

REPORT INFORMATION
  Report Type: 
  Country: None (occurrence: None)
  Receive Date: 20090811
  Receipt Date: 20090804
  Transmission Date: 20100115
  Serious: Yes (Disabling)
  Sender: FDA-Public Use
  Company Number: B0585222A

PATIENT
  Sex: Female

DRUGS (13)
  1. PAZOPANIB [Suspect]
     Indication: NEOPLASM MALIGNANT
     Dosage: 400MG PER DAY
     Route: 048
     Dates: start: 20090402, end: 20090716
  2. LAPATINIB [Suspect]
     Indication: NEOPLASM MALIGNANT
     Dosage: 1000MG PER DAY
     Route: 048
     Dates: start: 20090402, end: 20090716
  3. NORVASC [Concomitant]
     Indication: HYPERTENSION
     Dosage: 5MG PER DAY
     Route: 048
     Dates: start: 20090710
  4. DEPAS [Concomitant]
     Indication: HEADACHE
     Dosage: .5MG PER DAY
     Route: 048
     Dates: start: 20090528
  5. METHYLCOBAL [Concomitant]
     Indication: HYPOAESTHESIA
     Dosage: 4500MCG PER DAY
     Route: 048
     Dates: start: 20090624
  6. PYDOXAL [Concomitant]
     Indication: DERMATITIS ACNEIFORM
     Dosage: 90MG PER DAY
     Route: 048
     Dates: start: 20090624
  7. HIBON [Concomitant]
     Indication: HYPERCHOLESTEROLAEMIA
     Dosage: 180MG PER DAY
     Route: 048
     Dates: start: 20090624
  8. LAC B [Concomitant]
     Indication: DIARRHOEA
     Dosage: 9G PER DAY
     Route: 048
     Dates: start: 20090624
  9. ADSORBIN [Concomitant]
     Indication: DIARRHOEA
     Route: 048
     Dates: start: 20090707
  10. ALBUMIN TANNATE [Concomitant]
     Indication: DIARRHOEA
     Route: 048
     Dates: start: 20090707
  11. LOPEMIN [Concomitant]
     Indication: DIARRHOEA
     Route: 048
     Dates: start: 20090512
  12. HIRUDOID [Concomitant]
     Indication: PALMAR-PLANTAR ERYTHRODYSAESTHESIA SYNDROME
     Route: 061
     Dates: start: 20090504
  13. POSTERISAN [Concomitant]
     Indication: PROPHYLAXIS
     Route: 061

REACTIONS (7)
  - ALANINE AMINOTRANSFERASE INCREASED [None]
  - ASPARTATE AMINOTRANSFERASE INCREASED [None]
  - BLOOD BILIRUBIN INCREASED [None]
  - COUGH [None]
  - DIARRHOEA [None]
  - HEPATIC FUNCTION ABNORMAL [None]
  - PNEUMONIA [None]
